FAERS Safety Report 16932064 (Version 1)
Quarter: 2019Q4

REPORT INFORMATION
  Report Type: Spontaneous
  Country: US (occurrence: US)
  Receive Date: 20191017
  Receipt Date: 20191017
  Transmission Date: 20200122
  Serious: No
  Sender: FDA-Public Use
  Company Number: US-CHILTERN-US-2019-000740

PATIENT
  Age: 72 Year
  Sex: Male

DRUGS (3)
  1. RHOPRESSA [Suspect]
     Active Substance: NETARSUDIL MESYLATE
     Indication: INTRAOCULAR PRESSURE INCREASED
  2. RHOPRESSA [Suspect]
     Active Substance: NETARSUDIL MESYLATE
     Indication: GLAUCOMA
     Dosage: 2 GTT, QD
     Route: 047
     Dates: start: 20190813
  3. TIMOLOL. [Concomitant]
     Active Substance: TIMOLOL
     Indication: INTRAOCULAR PRESSURE INCREASED
     Dosage: 2 GTT, BID
     Route: 047

REACTIONS (1)
  - Conjunctival hyperaemia [Recovering/Resolving]

NARRATIVE: CASE EVENT DATE: 20190814
